FAERS Safety Report 9723891 (Version 1)
Quarter: 2013Q4

REPORT INFORMATION
  Report Type: Spontaneous
  Country: US (occurrence: US)
  Receive Date: 20131202
  Receipt Date: 20131202
  Transmission Date: 20140711
  Serious: No
  Sender: FDA-Public Use
  Company Number: US-AMGEN-USASP2013079279

PATIENT
  Age: 57 Year
  Sex: Male

DRUGS (1)
  1. ENBREL [Suspect]
     Indication: PSORIASIS
     Dosage: UNK
     Route: 065

REACTIONS (5)
  - Skin fissures [Unknown]
  - Condition aggravated [Unknown]
  - Skin haemorrhage [Unknown]
  - Injection site erythema [Unknown]
  - Injection site swelling [Unknown]
